FAERS Safety Report 16955821 (Version 1)
Quarter: 2019Q4

REPORT INFORMATION
  Report Type: Spontaneous
  Country: US (occurrence: US)
  Receive Date: 20191024
  Receipt Date: 20191024
  Transmission Date: 20200122
  Serious: Yes (Hospitalization, Other)
  Sender: FDA-Public Use
  Company Number: US-AUROBINDO-AUR-APL-2019-068363

PATIENT
  Age: 4 Year
  Sex: Female

DRUGS (1)
  1. DIVALPROEX SODIUM EXTENDED-RELEASE TABLETS USP 500MG [Suspect]
     Active Substance: DIVALPROEX SODIUM
     Indication: PRODUCT USED FOR UNKNOWN INDICATION
     Dosage: UNK
     Route: 048

REACTIONS (12)
  - Hypernatraemia [Recovered/Resolved]
  - Accidental overdose [Recovered/Resolved]
  - Toxicity to various agents [Recovered/Resolved]
  - Transaminases increased [Recovered/Resolved]
  - Drug level increased [Recovered/Resolved]
  - Unresponsive to stimuli [Recovered/Resolved]
  - Blood creatinine increased [Recovered/Resolved]
  - Hypotension [Recovered/Resolved]
  - Hyperammonaemia [Recovered/Resolved]
  - Acidosis [Recovered/Resolved]
  - Coma [Recovered/Resolved]
  - Hypocalcaemia [Recovered/Resolved]
